FAERS Safety Report 4976863-8 (Version None)
Quarter: 2006Q2

REPORT INFORMATION
  Report Type: 
  Country: None (occurrence: None)
  Receive Date: 20060419
  Receipt Date: 20060106
  Transmission Date: 20061013
  Serious: Yes (Hospitalization)
  Sender: FDA-Public Use
  Company Number: FR-AVENTIS-200610115FR

PATIENT
  Age: 79 Year
  Sex: Female

DRUGS (4)
  1. LASILIX [Suspect]
     Indication: HYPERTENSION
     Route: 048
     Dates: start: 19940701
  2. GARDENALE [Suspect]
     Route: 048
  3. TRIATEC [Suspect]
     Indication: HYPERTENSION
     Route: 048
     Dates: start: 19940701
  4. ELISOR [Concomitant]
     Route: 048
     Dates: start: 19940701, end: 20050923

REACTIONS (11)
  - ANTINUCLEAR ANTIBODY [None]
  - ANTINUCLEAR ANTIBODY POSITIVE [None]
  - BLOOD CREATINE PHOSPHOKINASE INCREASED [None]
  - BLOOD LACTATE DEHYDROGENASE INCREASED [None]
  - CONNECTIVE TISSUE DISORDER [None]
  - DERMATOMYOSITIS [None]
  - MYOGLOBIN BLOOD INCREASED [None]
  - PHOTOSENSITIVITY REACTION [None]
  - SCLERODERMA [None]
  - TELANGIECTASIA [None]
  - WEIGHT DECREASED [None]
